FAERS Safety Report 6774957-8 (Version None)
Quarter: 2010Q2

REPORT INFORMATION
  Report Type: 
  Country: None (occurrence: None)
  Receive Date: 20100617
  Receipt Date: 20100608
  Transmission Date: 20101027
  Serious: Yes (Hospitalization, Other)
  Sender: FDA-Public Use
  Company Number: PHHY2010US37606

PATIENT
  Age: 79 Year
  Sex: Female
  Weight: 68 kg

DRUGS (1)
  1. EXELON [Suspect]
     Indication: PARKINSONISM
     Dosage: ONE PATCH DAILY
     Route: 062
     Dates: start: 20100422, end: 20100427

REACTIONS (4)
  - DYSPHEMIA [None]
  - DYSTONIA [None]
  - SPEECH DISORDER [None]
  - TREMOR [None]
